FAERS Safety Report 5069487-8 (Version None)
Quarter: 2006Q3

REPORT INFORMATION
  Report Type: 
  Country: None (occurrence: None)
  Receive Date: 20060801
  Receipt Date: 20060801
  Transmission Date: 20061208
  Serious: Yes (Hospitalization)
  Sender: FDA-Public Use
  Company Number: None

PATIENT
  Age: 91 Year
  Sex: Female

DRUGS (1)
  1. DIGOXIN [Suspect]

REACTIONS (2)
  - BRADYCARDIA [None]
  - CARDIOACTIVE DRUG LEVEL INCREASED [None]
